FAERS Safety Report 4364105-6 (Version None)
Quarter: 2004Q2

REPORT INFORMATION
  Report Type: 
  Country: None (occurrence: None)
  Receive Date: 20040519
  Receipt Date: 20040507
  Transmission Date: 20050107
  Serious: Yes (Hospitalization)
  Sender: FDA-Public Use
  Company Number: US-JNJFOC-20040502007

PATIENT
  Sex: Female

DRUGS (1)
  1. TOPAMAX [Suspect]
     Dosage: 25 MG, ORAL
     Route: 048

REACTIONS (1)
  - HOSPITALISATION [None]
